FAERS Safety Report 20253226 (Version 2)
Quarter: 2022Q1

REPORT INFORMATION
  Report Type: Other
  Country: US (occurrence: None)
  Receive Date: 20211229
  Receipt Date: 20220103
  Transmission Date: 20220424
  Serious: Yes (Other)
  Sender: FDA-Public Use
  Company Number: US-ROCHE-2985185

PATIENT
  Age: 40 Year
  Sex: Female
  Weight: 83.990 kg

DRUGS (13)
  1. OCREVUS [Suspect]
     Active Substance: OCRELIZUMAB
     Indication: Relapsing-remitting multiple sclerosis
     Dosage: DATE OF TREATMENT: 02/MAR/2020, 16/MAR/2020, 18/AUG/2020, 01/FEB/2021, 19/JUL/2021,
     Route: 042
     Dates: start: 20200201
  2. OCREVUS [Suspect]
     Active Substance: OCRELIZUMAB
     Indication: Multiple sclerosis
  3. EFFEXOR [Concomitant]
     Active Substance: VENLAFAXINE HYDROCHLORIDE
     Dosage: STARTED TAKING ABOUT 3 YEARS AGO ;ONGOING: YES
     Route: 048
  4. LISINOPRIL [Concomitant]
     Active Substance: LISINOPRIL
     Dosage: STARTED TAKING OVER 5 YEARS AGO ;ONGOING: YES
     Route: 048
  5. PANTOPRAZOLE [Concomitant]
     Active Substance: PANTOPRAZOLE
     Dosage: YES
     Route: 048
     Dates: start: 2020
  6. TOPIRAMATE [Concomitant]
     Active Substance: TOPIRAMATE
     Dosage: YES
     Route: 048
     Dates: start: 2015
  7. CLONAZEPAM [Concomitant]
     Active Substance: CLONAZEPAM
     Dosage: YES
     Route: 048
     Dates: start: 2013
  8. GABAPENTIN [Concomitant]
     Active Substance: GABAPENTIN
     Indication: Multiple sclerosis
     Dosage: 1/2 TAB IN AM, AND 1.5 TAB AT BEDTIME ;ONGOING: YES
     Route: 048
     Dates: start: 2013
  9. BACLOFEN [Concomitant]
     Active Substance: BACLOFEN
     Dosage: YES
     Route: 048
     Dates: start: 2014
  10. MODAFINIL [Concomitant]
     Active Substance: MODAFINIL
     Dosage: 1/2 TAB TWO TIMES PER DAY ;ONGOING: YES
     Route: 048
  11. BENADRYL [Concomitant]
     Active Substance: DIPHENHYDRAMINE HYDROCHLORIDE
     Dosage: YES
     Route: 048
  12. ZYRTEC (UNITED STATES) [Concomitant]
     Dosage: YES
     Route: 048
  13. SOLU-MEDROL [Concomitant]
     Active Substance: METHYLPREDNISOLONE SODIUM SUCCINATE

REACTIONS (8)
  - Multiple sclerosis relapse [Recovering/Resolving]
  - Urticaria [Recovered/Resolved]
  - Throat irritation [Recovered/Resolved]
  - COVID-19 [Recovered/Resolved]
  - Asthma [Recovering/Resolving]
  - Immunodeficiency [Unknown]
  - Blister [Recovering/Resolving]
  - Bronchospasm [Recovering/Resolving]

NARRATIVE: CASE EVENT DATE: 20200401
